FAERS Safety Report 17807099 (Version 1)
Quarter: 2020Q2

REPORT INFORMATION
  Report Type: Spontaneous
  Country: US (occurrence: US)
  Receive Date: 20200520
  Receipt Date: 20200520
  Transmission Date: 20200714
  Serious: No
  Sender: FDA-Public Use
  Company Number: None

PATIENT
  Age: 65 Year
  Sex: Male

DRUGS (1)
  1. LISINOPRIL (LISINOPRIL 20MG TAB) [Suspect]
     Active Substance: LISINOPRIL
     Dates: start: 20170129, end: 20200304

REACTIONS (4)
  - Alopecia [None]
  - Stomatitis [None]
  - Photosensitivity reaction [None]
  - Rhinorrhoea [None]

NARRATIVE: CASE EVENT DATE: 20200311
